FAERS Safety Report 5910167-1 (Version None)
Quarter: 2008Q4

REPORT INFORMATION
  Report Type: 
  Country: None (occurrence: None)
  Receive Date: 20081007
  Receipt Date: 20070924
  Transmission Date: 20090506
  Serious: No
  Sender: FDA-Public Use
  Company Number: US-ASTRAZENECA-2007UW22341

PATIENT
  Age: 58 Year
  Sex: Female
  Weight: 63 kg

DRUGS (4)
  1. ARIMIDEX [Suspect]
     Indication: BREAST CANCER
     Route: 048
     Dates: start: 20070201
  2. FEMRING [Concomitant]
     Indication: VULVOVAGINAL DRYNESS
     Dates: end: 20070903
  3. VITAMINS [Concomitant]
  4. LEVOXYL [Concomitant]

REACTIONS (1)
  - HAIR DISORDER [None]
